FAERS Safety Report 24834649 (Version 1)
Quarter: 2025Q1

REPORT INFORMATION
  Report Type: Spontaneous
  Country: US (occurrence: None)
  Receive Date: 20250110
  Receipt Date: 20250110
  Transmission Date: 20250409
  Serious: No
  Sender: FDA-CTU
  Company Number: None

PATIENT
  Sex: Female

DRUGS (3)
  1. DEVICE [Suspect]
     Active Substance: DEVICE
     Indication: Chronic obstructive pulmonary disease
  2. DEVICE [Suspect]
     Active Substance: DEVICE
     Dates: start: 202412
  3. OHTUVAYRE INH SUSP [Concomitant]

REACTIONS (1)
  - Incorrect dose administered by device [None]
